FAERS Safety Report 14066566 (Version 1)
Quarter: 2017Q4

REPORT INFORMATION
  Report Type: Spontaneous
  Country: BR (occurrence: BR)
  Receive Date: 20171009
  Receipt Date: 20171009
  Transmission Date: 20180321
  Serious: Yes (Other)
  Sender: FDA-Public Use
  Company Number: BR-SA-2017SA191424

PATIENT
  Sex: Male

DRUGS (2)
  1. SOLOSTAR [Suspect]
     Active Substance: DEVICE
  2. LANTUS SOLOSTAR [Suspect]
     Active Substance: INSULIN GLARGINE
     Indication: FOETAL EXPOSURE DURING PREGNANCY
     Route: 064
     Dates: end: 20170719

REACTIONS (4)
  - Foetal exposure during pregnancy [Unknown]
  - Kidney malformation [Unknown]
  - Foetal renal impairment [Unknown]
  - Premature baby [Unknown]

NARRATIVE: CASE EVENT DATE: 20170719
